FAERS Safety Report 20360109 (Version 3)
Quarter: 2022Q1

REPORT INFORMATION
  Report Type: Spontaneous
  Country: US (occurrence: None)
  Receive Date: 20220121
  Receipt Date: 20220314
  Transmission Date: 20220424
  Serious: Yes (Other)
  Sender: FDA-Public Use
  Company Number: US-ROCHE-3001990

PATIENT
  Age: 70 Year
  Sex: Male
  Weight: 72.640 kg

DRUGS (1)
  1. ZELBORAF [Suspect]
     Active Substance: VEMURAFENIB
     Indication: Papillary thyroid cancer
     Route: 048
     Dates: start: 20211221

REACTIONS (8)
  - Aspiration [Unknown]
  - Oropharyngeal pain [Unknown]
  - Aphonia [Unknown]
  - Off label use [Unknown]
  - Product use complaint [Not Recovered/Not Resolved]
  - Malignant neoplasm progression [Not Recovered/Not Resolved]
  - Acrochordon [Not Recovered/Not Resolved]
  - Wrong technique in product usage process [Unknown]

NARRATIVE: CASE EVENT DATE: 20211221
